FAERS Safety Report 19367325 (Version 2)
Quarter: 2021Q4

REPORT INFORMATION
  Report Type: Spontaneous
  Country: US (occurrence: US)
  Receive Date: 20210602
  Receipt Date: 20211011
  Transmission Date: 20220303
  Serious: No
  Sender: FDA-Public Use
  Company Number: US-ROCHE-2768492

PATIENT
  Sex: Female
  Weight: 92.57 kg

DRUGS (6)
  1. EVRYSDI [Suspect]
     Active Substance: RISDIPLAM
     Indication: Spinal muscular atrophy
     Dosage: 0.75 MG/1 ML
     Route: 048
  2. LORATADINE [Concomitant]
     Active Substance: LORATADINE
  3. URSODIOL [Concomitant]
     Active Substance: URSODIOL
     Route: 048
  4. CHOLECALCIFEROL [Concomitant]
     Active Substance: CHOLECALCIFEROL
     Dosage: 1250 MCG WAFER
  5. LEVOMEFOLIC ACID [Concomitant]
     Active Substance: LEVOMEFOLIC ACID
     Route: 048
  6. PROAIR HFA [Concomitant]
     Active Substance: ALBUTEROL SULFATE
     Dosage: 90 MCG HFA AER AD

REACTIONS (3)
  - Syringe issue [Unknown]
  - Incorrect dose administered by device [Unknown]
  - No adverse event [Unknown]
